FAERS Safety Report 7450015-4 (Version None)
Quarter: 2011Q2

REPORT INFORMATION
  Report Type: 
  Country: None (occurrence: None)
  Receive Date: 20110502
  Receipt Date: 20081117
  Transmission Date: 20111010
  Serious: Yes (Death, Hospitalization, Other)
  Sender: FDA-Public Use
  Company Number: US-BAYER-200838780NA

PATIENT
  Age: 69 Year
  Sex: Male
  Weight: 78.458 kg

DRUGS (18)
  1. TRASYLOL [Suspect]
     Indication: INTRA-AORTIC BALLOON PLACEMENT
  2. KEFZOL [Concomitant]
     Dosage: 2 G, UNK
     Route: 042
     Dates: start: 20051221
  3. ACETYLSALICYLIC ACID SRT [Concomitant]
     Dosage: 81 MG, QD
     Route: 048
     Dates: start: 20051211, end: 20051221
  4. AMIODARONE [Concomitant]
     Dosage: 150 MG, UNK
     Route: 042
     Dates: start: 20051221
  5. HEPARIN [Concomitant]
     Dosage: 32000 PER PUMP
     Route: 042
     Dates: start: 20051221, end: 20051221
  6. TRASYLOL [Suspect]
     Indication: CORONARY ARTERY BYPASS
     Route: 042
     Dates: start: 20051221
  7. TRASYLOL [Suspect]
     Indication: AORTIC VALVE REPLACEMENT
  8. NITROGLYCERIN [Concomitant]
     Dosage: UNK
     Route: 042
     Dates: start: 20051217
  9. LASIX [Concomitant]
     Dosage: 20 MG, UNK
     Route: 042
     Dates: start: 20051221
  10. PLATELETS [Concomitant]
     Dosage: 1 U, UNK
     Dates: start: 20051221
  11. CEFOTAXIME [Concomitant]
     Dosage: 1 G, EVERY 8 HOURS
     Route: 042
     Dates: start: 20051208, end: 20051221
  12. MILRINONE [Concomitant]
     Dosage: 0.75 MCG/KG/MINUTE
     Route: 042
     Dates: start: 20051213
  13. COREG [Concomitant]
     Dosage: 3.125 MG, BID
     Route: 048
     Dates: start: 20051210
  14. BUMEX [Concomitant]
     Dosage: 2 MG, BID
     Route: 042
     Dates: start: 20051215, end: 20051225
  15. LOPRESSOR [Concomitant]
     Dosage: 12.5-25 MG
     Route: 048
     Dates: start: 20051215
  16. AMICAR [Concomitant]
     Dosage: 6
     Route: 042
     Dates: start: 20051221, end: 20051221
  17. INSULIN HUMAN [Concomitant]
     Dosage: 2-15 WITH 10 UNIT BOLUS TIMES 2
     Route: 042
     Dates: start: 20051221
  18. EPINEPHRINE [Concomitant]
     Dosage: UNK
     Dates: start: 20051221

REACTIONS (2)
  - RENAL FAILURE [None]
  - INJURY [None]
